FAERS Safety Report 4831391-5 (Version None)
Quarter: 2005Q4

REPORT INFORMATION
  Report Type: 
  Country: None (occurrence: None)
  Receive Date: 20051118
  Receipt Date: 20051108
  Transmission Date: 20060501
  Serious: Yes (Hospitalization)
  Sender: FDA-Public Use
  Company Number: FR-GLAXOSMITHKLINE-B0399697A

PATIENT
  Age: 66 Year
  Sex: Male

DRUGS (6)
  1. DEROXAT [Suspect]
     Dosage: 20MG PER DAY
     Route: 048
  2. PREVISCAN [Suspect]
     Dosage: 25MG PER DAY
     Route: 048
     Dates: end: 20041222
  3. FUMAFER [Concomitant]
     Dosage: 200MG TWICE PER DAY
     Route: 048
  4. LASILIX [Concomitant]
     Indication: ESSENTIAL HYPERTENSION
     Dosage: 40MG PER DAY
     Route: 048
  5. MOTILIUM [Concomitant]
     Dosage: 10MG TWICE PER DAY
     Route: 048
  6. MONICOR LP [Concomitant]
     Dosage: 20MG PER DAY
     Route: 048

REACTIONS (2)
  - DRUG INTERACTION [None]
  - GASTROINTESTINAL HAEMORRHAGE [None]
